FAERS Safety Report 6420286-1 (Version None)
Quarter: 2009Q4

REPORT INFORMATION
  Report Type: 
  Country: None (occurrence: None)
  Receive Date: 20091029
  Receipt Date: 20091019
  Transmission Date: 20100525
  Serious: Yes (Death)
  Sender: FDA-Public Use
  Company Number: US-BAXTER-2009BH016198

PATIENT
  Age: 58 Year
  Sex: Male

DRUGS (4)
  1. DIANEAL [Suspect]
     Indication: PERITONEAL DIALYSIS
     Route: 033
     Dates: start: 20000101, end: 20090904
  2. DIANEAL [Suspect]
     Route: 033
     Dates: start: 20000101, end: 20090904
  3. DIANEAL [Suspect]
     Indication: PERITONEAL DIALYSIS
     Route: 033
     Dates: start: 20000101, end: 20090904
  4. DIANEAL [Suspect]
     Route: 033
     Dates: start: 20000101, end: 20090904

REACTIONS (1)
  - CARDIAC ARREST [None]
